FAERS Safety Report 8115585 (Version 4)
Quarter: 2014Q4

REPORT INFORMATION
  Report Type: Spontaneous
  Country: JP (occurrence: JP)
  Receive Date: 20110831
  Receipt Date: 20141124
  Transmission Date: 20150529
  Serious: Yes (Other)
  Sender: FDA-Public Use
  Company Number: PHHY2011JP76107

PATIENT
  Age: 75 Year
  Sex: Male

DRUGS (9)
  1. ESTRAMUSTINE PHOSPHATE SODIUM [Concomitant]
     Active Substance: ESTRAMUSTINE PHOSPHATE SODIUM
     Indication: METASTASES TO BONE
     Dosage: 4 DF, QD
     Route: 065
     Dates: start: 200806
  2. ZOMETA [Suspect]
     Active Substance: ZOLEDRONIC ACID
     Indication: PROSTATE CANCER METASTATIC
  3. DOCETAXEL. [Concomitant]
     Active Substance: DOCETAXEL
     Indication: METASTASES TO BONE
     Dosage: 100 MG, UNK
     Route: 065
     Dates: start: 200806
  4. ESTRAMUSTINE PHOSPHATE SODIUM [Concomitant]
     Active Substance: ESTRAMUSTINE PHOSPHATE SODIUM
     Indication: PROSTATE CANCER METASTATIC
  5. PREDNISOLONE. [Concomitant]
     Active Substance: PREDNISOLONE
     Indication: METASTASES TO BONE
     Dosage: 10 MG
     Route: 048
     Dates: start: 200806
  6. ZOMETA [Suspect]
     Active Substance: ZOLEDRONIC ACID
     Indication: METASTASES TO BONE
     Dosage: 4 MG, QMO
     Route: 065
     Dates: start: 20080518, end: 200910
  7. PREDNISOLONE. [Concomitant]
     Active Substance: PREDNISOLONE
     Indication: PROSTATE CANCER METASTATIC
  8. DOCETAXEL. [Concomitant]
     Active Substance: DOCETAXEL
     Indication: PROSTATE CANCER METASTATIC
     Dosage: 50 MG, QW (2-WEEK ON AND 2-WEEK OFF)
     Route: 065
  9. BCG [Concomitant]
     Active Substance: BCG VACCINE
     Indication: PROSTATE CANCER
     Route: 065

REACTIONS (12)
  - Hyperkeratosis [Unknown]
  - Oral disorder [Recovering/Resolving]
  - Gingival erythema [Unknown]
  - Swelling [Unknown]
  - Pain in jaw [Unknown]
  - Subcutaneous abscess [Unknown]
  - Tenderness [Unknown]
  - Trismus [Unknown]
  - Pyrexia [Unknown]
  - Dental necrosis [Unknown]
  - Osteonecrosis of jaw [Recovered/Resolved]
  - Purulent discharge [Unknown]

NARRATIVE: CASE EVENT DATE: 200912
